FAERS Safety Report 4948665-X (Version None)
Quarter: 2006Q1

REPORT INFORMATION
  Report Type: 
  Country: None (occurrence: None)
  Receive Date: 20060313
  Receipt Date: 20060228
  Transmission Date: 20060701
  Serious: Yes (Hospitalization)
  Sender: FDA-Public Use
  Company Number: 2005155877

PATIENT
  Age: 60 Year
  Sex: Female
  Weight: 54 kg

DRUGS (13)
  1. AROMASIN [Suspect]
     Indication: BREAST CANCER
     Dosage: 25 MG (25 MG, DAILY), ORAL
     Route: 048
     Dates: start: 20050205
  2. MUCOSTA (REBAMIPIDE) [Concomitant]
  3. URSO 250 [Concomitant]
  4. ISOSORBIDE MONONITRATE [Concomitant]
  5. ALPRAZOLAM [Concomitant]
  6. DEPAS (ETIZOLAM) [Concomitant]
  7. SILECE (FLUNITRAZEPAM) [Concomitant]
  8. DOPRAL (QUAZEPAM) [Concomitant]
  9. ASPIRIN [Concomitant]
  10. PURSENNID (SENNA LEAF) [Concomitant]
  11. NITROPEN (GLYCERYL TRINITRATE) [Concomitant]
  12. FAMOTIDINE [Concomitant]
  13. SELBEX (TEPRENONE) [Concomitant]

REACTIONS (3)
  - ANGINA PECTORIS [None]
  - CONDITION AGGRAVATED [None]
  - OEDEMA DUE TO CARDIAC DISEASE [None]
